FAERS Safety Report 18894426 (Version 3)
Quarter: 2021Q2

REPORT INFORMATION
  Report Type: Spontaneous
  Country: ES (occurrence: ES)
  Receive Date: 20210215
  Receipt Date: 20210524
  Transmission Date: 20210717
  Serious: Yes (Hospitalization)
  Sender: FDA-Public Use
  Company Number: ES-ELI_LILLY_AND_COMPANY-ES202102003065

PATIENT
  Sex: Female

DRUGS (7)
  1. FORSTEO 250UG/ML [Suspect]
     Active Substance: TERIPARATIDE
     Indication: PRODUCT USED FOR UNKNOWN INDICATION
     Dosage: UNK UNK, UNKNOWN
     Route: 065
     Dates: start: 202011, end: 20210201
  2. OMEPRAZOLE. [Concomitant]
     Active Substance: OMEPRAZOLE
     Indication: PRODUCT USED FOR UNKNOWN INDICATION
  3. ATORVASTATIN [Concomitant]
     Active Substance: ATORVASTATIN
     Indication: BLOOD CHOLESTEROL
  4. VALSARTAN. [Concomitant]
     Active Substance: VALSARTAN
     Indication: HYPERTENSION
  5. ESCITALOPRAM [Concomitant]
     Active Substance: ESCITALOPRAM OXALATE
     Indication: THYROID DISORDER
  6. ESCITALOPRAM [Concomitant]
     Active Substance: ESCITALOPRAM OXALATE
     Indication: DEPRESSION
  7. HEPARIN [Concomitant]
     Active Substance: HEPARIN SODIUM
     Indication: PRODUCT USED FOR UNKNOWN INDICATION
     Dosage: UNK UNK, UNKNOWN
     Route: 058

REACTIONS (12)
  - Lumbar vertebral fracture [Recovering/Resolving]
  - Subarachnoid haemorrhage [Recovering/Resolving]
  - Wound [Recovering/Resolving]
  - Thoracic vertebral fracture [Recovering/Resolving]
  - Joint dislocation [Recovering/Resolving]
  - Tibia fracture [Recovering/Resolving]
  - Vitamin D deficiency [Recovering/Resolving]
  - Road traffic accident [Recovering/Resolving]
  - Post procedural infection [Recovering/Resolving]
  - Impaired healing [Recovering/Resolving]
  - Fibula fracture [Recovering/Resolving]
  - Sternal fracture [Recovering/Resolving]
